FAERS Safety Report 4937430-5 (Version None)
Quarter: 2006Q1

REPORT INFORMATION
  Report Type: 
  Country: None (occurrence: None)
  Receive Date: 20060302
  Receipt Date: 20060214
  Transmission Date: 20060701
  Serious: Yes (Other)
  Sender: FDA-Public Use
  Company Number: FR200602003179

PATIENT
  Age: 65 Year
  Sex: Female

DRUGS (10)
  1. FORTEO [Suspect]
     Indication: OSTEOPOROSIS
     Dosage: 20 UG, DAILY (1/D), SUBCUTANEOUS
     Route: 058
     Dates: start: 20051002, end: 20060208
  2. FORTEO [Concomitant]
  3. COVERSYL (PERINDOPRIL) [Concomitant]
  4. FUROSEMIDE [Concomitant]
  5. SEROPRAM/SCH/(CITALOPRAM HYDROBROMIDE) [Concomitant]
  6. LEXOMIL (BROMAZEPAM) [Concomitant]
  7. NICARDIPINE HYDROCHLORIDE [Concomitant]
  8. ATARAX [Concomitant]
  9. OMEPRAZOLE [Concomitant]
  10. FENOFIBRATE [Concomitant]

REACTIONS (5)
  - BLOOD PRESSURE INCREASED [None]
  - FATIGUE [None]
  - GOITRE [None]
  - PAIN [None]
  - THYROID NEOPLASM [None]
